FAERS Safety Report 24636802 (Version 1)
Quarter: 2024Q4

REPORT INFORMATION
  Report Type: Spontaneous
  Country: GB (occurrence: GB)
  Receive Date: 20241119
  Receipt Date: 20241119
  Transmission Date: 20250114
  Serious: Yes (Other)
  Sender: SAMSUNG BIOEPIS
  Company Number: None

PATIENT
  Age: 9 Year
  Sex: Female
  Weight: 33 kg

DRUGS (3)
  1. INFLIXIMAB [Suspect]
     Active Substance: INFLIXIMAB
     Indication: Juvenile idiopathic arthritis
     Dosage: 6MG/KG;
     Dates: end: 20241022
  2. INFLIXIMAB [Suspect]
     Active Substance: INFLIXIMAB
     Indication: Uveitis
  3. AZATHIOPRINE [Concomitant]
     Active Substance: AZATHIOPRINE
     Indication: Uveitis
     Route: 050
     Dates: end: 20221201

REACTIONS (2)
  - Anaphylactic reaction [Recovered/Resolved]
  - Off label use [Unknown]

NARRATIVE: CASE EVENT DATE: 20241022
